FAERS Safety Report 16600543 (Version 1)
Quarter: 2019Q3

REPORT INFORMATION
  Report Type: Spontaneous
  Country: ES (occurrence: ES)
  Receive Date: 20190719
  Receipt Date: 20190719
  Transmission Date: 20191004
  Serious: Yes (Other)
  Sender: FDA-Public Use
  Company Number: PHHY2019ES163884

PATIENT
  Age: 36 Year
  Sex: Female
  Weight: 60 kg

DRUGS (5)
  1. INTERFERON BETA NOS [Concomitant]
     Active Substance: INTERFERON BETA
     Indication: MULTIPLE SCLEROSIS
     Dosage: UNK
     Route: 065
     Dates: start: 201006, end: 2014
  2. PREDNISONE. [Concomitant]
     Active Substance: PREDNISONE
     Indication: MULTIPLE SCLEROSIS RELAPSE
     Dosage: 60 MG, QD (GRADUALLY REDUCED)
     Route: 065
  3. METHYLPREDNISOLONE. [Suspect]
     Active Substance: METHYLPREDNISOLONE
     Dosage: 1 G, QD
     Route: 042
  4. SERTRALINE [Concomitant]
     Active Substance: SERTRALINE HYDROCHLORIDE
     Indication: DEPRESSION
     Dosage: UNK
     Route: 065
  5. METHYLPREDNISOLONE. [Suspect]
     Active Substance: METHYLPREDNISOLONE
     Indication: RELAPSING MULTIPLE SCLEROSIS
     Dosage: 1 G, QD
     Route: 042
     Dates: start: 20140705, end: 20140710

REACTIONS (2)
  - Drug-induced liver injury [Unknown]
  - Hepatocellular injury [Unknown]

NARRATIVE: CASE EVENT DATE: 201408
